FAERS Safety Report 6018407-8 (Version None)
Quarter: 2008Q4

REPORT INFORMATION
  Report Type: 
  Country: None (occurrence: None)
  Receive Date: 20081218
  Receipt Date: 20080512
  Transmission Date: 20090506
  Serious: No
  Sender: FDA-Public Use
  Company Number: 08H-163-0314294-00

PATIENT
  Sex: Female
  Weight: 119 kg

DRUGS (2)
  1. BUPIVACAINE HCL [Suspect]
     Indication: SPINAL ANAESTHESIA
     Dosage: SPINAL
  2. BUPIVACAINE [Suspect]
     Indication: SPINAL ANAESTHESIA
     Dosage: SPINAL

REACTIONS (2)
  - DRUG EFFECT DECREASED [None]
  - POST LUMBAR PUNCTURE SYNDROME [None]
